FAERS Safety Report 4348243-X (Version None)
Quarter: 2004Q2

REPORT INFORMATION
  Report Type: 
  Country: None (occurrence: None)
  Receive Date: 20040422
  Receipt Date: 20040416
  Transmission Date: 20050107
  Serious: No
  Sender: FDA-Public Use
  Company Number: 2004UW04395

PATIENT
  Age: 37 Year
  Sex: Male

DRUGS (5)
  1. SEROQUEL [Suspect]
     Indication: DELUSIONAL DISORDER, UNSPECIFIED TYPE
     Dosage: 100 MG BID PO
     Route: 048
     Dates: start: 20030502
  2. SEROQUEL [Suspect]
     Indication: DELUSIONAL DISORDER, UNSPECIFIED TYPE
     Dosage: 800 MG DAILY PO
     Route: 048
     Dates: start: 20030601, end: 20040301
  3. FLUOXETINE [Concomitant]
  4. HALDOL [Concomitant]
  5. GLYBURIDE [Concomitant]

REACTIONS (2)
  - CATARACT [None]
  - LENS DISORDER [None]
